FAERS Safety Report 8873089 (Version 2)
Quarter: 2013Q1

REPORT INFORMATION
  Report Type: Spontaneous
  Country: JP (occurrence: JP)
  Receive Date: 20121030
  Receipt Date: 20130215
  Transmission Date: 20140127
  Serious: Yes (Other)
  Sender: FDA-Public Use
  Company Number: JP-009507513-1210JPN011764

PATIENT
  Age: 72 Year
  Sex: Male

DRUGS (3)
  1. JANUVIA TABLETS 50MG [Suspect]
     Indication: HYPOGLYCAEMIA
     Dosage: 50 MG, QD
     Route: 048
     Dates: start: 201102, end: 201210
  2. VITANEURIN (FURSULTIAMINE (+) HYDROXOCOBALAMIN ACETATE (+) PYRIDOXAL P [Concomitant]
     Dosage: DAILY DOSE UNKNOWN
  3. ASCORBIC ACID [Concomitant]
     Dosage: DAILY DOSE UNKNOWN

REACTIONS (2)
  - Mucosal inflammation [Unknown]
  - Ocular discomfort [Unknown]
